FAERS Safety Report 11661118 (Version 2)
Quarter: 2015Q4

REPORT INFORMATION
  Report Type: Report from Study
  Country: PK (occurrence: PK)
  Receive Date: 20151026
  Receipt Date: 20151111
  Transmission Date: 20160304
  Serious: Yes (Death, Life-Threatening, Hospitalization)
  Sender: FDA-Public Use
  Company Number: PHHY2015PK137436

PATIENT
  Age: 47 Year
  Sex: Female

DRUGS (3)
  1. THEOPHYLLINE [Concomitant]
     Active Substance: THEOPHYLLINE ANHYDROUS
     Indication: PRODUCT USED FOR UNKNOWN INDICATION
     Route: 065
  2. TASIGNA [Suspect]
     Active Substance: NILOTINIB
     Indication: CHRONIC MYELOID LEUKAEMIA
     Dosage: 600 MG, QD
     Route: 048
     Dates: start: 20151002, end: 20151008
  3. AVIL [Concomitant]
     Active Substance: PHENIRAMINE
     Indication: PRODUCT USED FOR UNKNOWN INDICATION
     Route: 065

REACTIONS (3)
  - Headache [Unknown]
  - Cardio-respiratory arrest [Fatal]
  - Dyspnoea [Unknown]

NARRATIVE: CASE EVENT DATE: 20151002
